FAERS Safety Report 4513104-X (Version None)
Quarter: 2004Q4

REPORT INFORMATION
  Report Type: 
  Country: None (occurrence: None)
  Receive Date: 20040928
  Receipt Date: 20040630
  Transmission Date: 20050328
  Serious: No
  Sender: FDA-Public Use
  Company Number: 04P-163-0265269-00

PATIENT
  Age: 61 Year
  Sex: Female
  Weight: 68.0396 kg

DRUGS (8)
  1. HUMIRA [Suspect]
     Indication: PSORIATIC ARTHROPATHY
     Dosage: 40 MG, 1 IN 2 WK, SUBCUTANEOUS
     Route: 058
     Dates: start: 20030101
  2. ATORVASTATIN CALCIUM [Concomitant]
  3. PANTOPRAZOLE [Concomitant]
  4. CELECOXIB [Concomitant]
  5. FOLIC ACID [Concomitant]
  6. METHOTREXATE SODIUM [Concomitant]
  7. CYCLOBENZAPRINE HYDROCHLORIDE [Concomitant]
  8. PREDNISONE [Concomitant]

REACTIONS (3)
  - CONDITION AGGRAVATED [None]
  - MEDICATION ERROR [None]
  - MYALGIA [None]
